FAERS Safety Report 6304955-X (Version None)
Quarter: 2009Q3

REPORT INFORMATION
  Report Type: 
  Country: None (occurrence: None)
  Receive Date: 20090806
  Receipt Date: 20090615
  Transmission Date: 20100115
  Serious: Yes (Other)
  Sender: FDA-Public Use
  Company Number: WAES 0906USA02640

PATIENT
  Age: 63 Year
  Sex: Female

DRUGS (8)
  1. JANUMET [Suspect]
     Indication: DIABETES MELLITUS
     Dosage: 100MG/50 MG/BID/PO
     Route: 048
     Dates: start: 20081222
  2. VYTORIN [Suspect]
     Dosage: PO
     Route: 048
     Dates: start: 20090101, end: 20090609
  3. AMARYL [Concomitant]
  4. BONIVA [Concomitant]
  5. JANUVIA [Concomitant]
  6. PAXIL [Concomitant]
  7. VIVELLE-DOT [Concomitant]
  8. XANAX [Concomitant]

REACTIONS (5)
  - ALANINE AMINOTRANSFERASE INCREASED [None]
  - ASPARTATE AMINOTRANSFERASE INCREASED [None]
  - BLOOD CHOLESTEROL INCREASED [None]
  - BLOOD TRIGLYCERIDES INCREASED [None]
  - LOW DENSITY LIPOPROTEIN INCREASED [None]
